FAERS Safety Report 4802754-9 (Version None)
Quarter: 2005Q4

REPORT INFORMATION
  Report Type: 
  Country: None (occurrence: None)
  Receive Date: 20051017
  Receipt Date: 20051017
  Transmission Date: 20060501
  Serious: Yes (Hospitalization)
  Sender: FDA-Public Use
  Company Number: None

PATIENT
  Age: 67 Year
  Sex: Male

DRUGS (11)
  1. FOSINOPRIL SODIUM [Suspect]
     Dosage: 40MG PO QD
     Route: 048
     Dates: start: 20050615, end: 20050730
  2. TRAMADOL HCL [Concomitant]
  3. GEMFIBROZIL [Concomitant]
  4. HYDROCHLOROTHIAZIDE [Concomitant]
  5. MONOPRIL [Concomitant]
  6. GLUCOTROL [Concomitant]
  7. ROSIGLITAZONE [Concomitant]
  8. THIAMINE [Concomitant]
  9. ILDENAFIL [Concomitant]
  10. VIAGRA [Concomitant]
  11. RANITIDINE HCL ZANTAC [Concomitant]

REACTIONS (1)
  - RENAL FAILURE ACUTE [None]
